FAERS Safety Report 24547722 (Version 1)
Quarter: 2024Q4

REPORT INFORMATION
  Report Type: Spontaneous
  Country: AU (occurrence: AU)
  Receive Date: 20241025
  Receipt Date: 20241025
  Transmission Date: 20250115
  Serious: Yes (Life-Threatening, Other)
  Sender: REGENERON
  Company Number: AU-BAYER-2024A150367

PATIENT
  Sex: Female

DRUGS (2)
  1. EYLEA [Suspect]
     Active Substance: AFLIBERCEPT
     Indication: Macular oedema
     Dosage: RIGHT EYE MONTHLY, SOLUTION FOR INJECTION IN PRE-FILLED SYRINGE, 40 MG/ML
  2. PHENYLEPHRINE HYDROCHLORIDE\PREDNISOLONE ACETATE [Concomitant]
     Active Substance: PHENYLEPHRINE HYDROCHLORIDE\PREDNISOLONE ACETATE
     Indication: Product used for unknown indication
     Dosage: UNK
     Dates: start: 20241018

REACTIONS (2)
  - Vitrectomy [Unknown]
  - Vitreoretinal traction syndrome [Unknown]
